FAERS Safety Report 16004458 (Version 1)
Quarter: 2019Q1

REPORT INFORMATION
  Report Type: Report from Study
  Country: ES (occurrence: ES)
  Receive Date: 20190226
  Receipt Date: 20190226
  Transmission Date: 20190418
  Serious: Yes (Hospitalization)
  Sender: FDA-Public Use
  Company Number: ES-ACCORD-109298

PATIENT
  Age: 41 Year
  Sex: Male
  Weight: 148 kg

DRUGS (6)
  1. RANITIDINE. [Suspect]
     Active Substance: RANITIDINE
     Indication: PRODUCT USED FOR UNKNOWN INDICATION
     Dosage: 100 MG, ONCE A DAY
     Route: 048
     Dates: start: 20170811, end: 20170905
  2. PANTOPRAZOLE [Suspect]
     Active Substance: PANTOPRAZOLE
     Indication: PRODUCT USED FOR UNKNOWN INDICATION
     Dosage: 80 MG, ONCE A DAY
     Route: 042
     Dates: start: 20170731, end: 20170901
  3. CLOXACILLIN [Suspect]
     Active Substance: CLOXACILLIN
     Indication: BACTERAEMIA
     Dosage: 12G, 1 TIME PER DAY
     Route: 042
     Dates: start: 20170817, end: 20170901
  4. METOCLOPRAMIDE. [Suspect]
     Active Substance: METOCLOPRAMIDE
     Indication: NAUSEA
     Dosage: 30 MG, ONCE A DAY
     Route: 042
     Dates: start: 20170730, end: 20170831
  5. VANCOMYCIN [Suspect]
     Active Substance: VANCOMYCIN
     Indication: BACTERAEMIA
     Dosage: 2 G, 1 TIME PER DAY
     Route: 042
     Dates: start: 20170818, end: 20170830
  6. ONDANSETRON [Suspect]
     Active Substance: ONDANSETRON
     Indication: PRODUCT USED FOR UNKNOWN INDICATION
     Dosage: 24 MG, ONCE A DAY
     Route: 042
     Dates: start: 20170731, end: 20170905

REACTIONS (1)
  - Drug reaction with eosinophilia and systemic symptoms [Recovered/Resolved]

NARRATIVE: CASE EVENT DATE: 20170902
